FAERS Safety Report 6397976-2 (Version None)
Quarter: 2009Q4

REPORT INFORMATION
  Report Type: 
  Country: None (occurrence: None)
  Receive Date: 20091013
  Receipt Date: 20091002
  Transmission Date: 20100525
  Serious: Yes (Hospitalization)
  Sender: FDA-Public Use
  Company Number: US-JNJFOC-20091001125

PATIENT
  Sex: Female
  Weight: 64.86 kg

DRUGS (4)
  1. REMICADE [Suspect]
     Route: 042
     Dates: start: 20040101, end: 20090822
  2. REMICADE [Suspect]
     Indication: CROHN'S DISEASE
     Route: 042
     Dates: start: 20040101, end: 20090822
  3. HUMIRA [Suspect]
     Indication: CROHN'S DISEASE
     Dosage: DISCONTINUED IN 2009
  4. METHOTREXATE [Concomitant]

REACTIONS (3)
  - ARTHRALGIA [None]
  - CROHN'S DISEASE [None]
  - MUSCULAR WEAKNESS [None]
